FAERS Safety Report 5964350-X (Version None)
Quarter: 2008Q4

REPORT INFORMATION
  Report Type: 
  Country: None (occurrence: None)
  Receive Date: 20081124
  Receipt Date: 20081117
  Transmission Date: 20090506
  Serious: No
  Sender: FDA-Public Use
  Company Number: IL-GILEAD-2008-0018566

PATIENT
  Sex: Female

DRUGS (4)
  1. TRUVADA [Suspect]
     Indication: HIV INFECTION
     Route: 048
  2. TMC125 [Suspect]
     Indication: HIV INFECTION
     Route: 048
  3. PREZISTA [Suspect]
     Indication: HIV INFECTION
     Route: 048
  4. NORVIR [Suspect]
     Indication: HIV INFECTION

REACTIONS (2)
  - ABORTION INDUCED [None]
  - PREGNANCY [None]
